FAERS Safety Report 8083816-2 (Version None)
Quarter: 2012Q1

REPORT INFORMATION
  Report Type: 
  Country: None (occurrence: None)
  Receive Date: 20120128
  Receipt Date: 20110125
  Transmission Date: 20120608
  Serious: No
  Sender: FDA-Public Use
  Company Number: US-ABBOTT-11P-163-0701179-00

PATIENT
  Sex: Female
  Weight: 63.56 kg

DRUGS (8)
  1. INSULIN [Concomitant]
     Indication: DIABETES MELLITUS
  2. BENTYL [Concomitant]
     Indication: CROHN'S DISEASE
  3. XANAX [Concomitant]
     Indication: SLEEP DISORDER
  4. PROZAC [Concomitant]
     Indication: DEPRESSION
  5. HYDROCODONE BITARTRATE [Concomitant]
     Indication: PAIN
  6. HUMIRA [Suspect]
     Indication: CROHN'S DISEASE
     Dates: start: 20080101
  7. OMEPRAZOLE [Concomitant]
     Indication: GASTRIC DISORDER
  8. ZOCOR [Concomitant]
     Indication: BLOOD CHOLESTEROL INCREASED

REACTIONS (6)
  - FATIGUE [None]
  - DEPRESSION [None]
  - ABDOMINAL PAIN [None]
  - GASTROOESOPHAGEAL REFLUX DISEASE [None]
  - HYPERCALCAEMIA [None]
  - ASTHENIA [None]
